FAERS Safety Report 4882589-1 (Version None)
Quarter: 2006Q1

REPORT INFORMATION
  Report Type: 
  Country: None (occurrence: None)
  Receive Date: 20060117
  Receipt Date: 20060106
  Transmission Date: 20060701
  Serious: Yes (Other)
  Sender: FDA-Public Use
  Company Number: ES-MERCK-0601ESP00008

PATIENT
  Age: 25 Year
  Sex: Female

DRUGS (6)
  1. CRIXIVAN [Suspect]
     Indication: HIV INFECTION
     Route: 048
  2. CRIXIVAN [Suspect]
     Route: 048
  3. ZIDOVUDINE [Suspect]
     Indication: HIV INFECTION
     Route: 048
  4. ZIDOVUDINE [Suspect]
     Route: 048
  5. LAMIVUDINE [Suspect]
     Indication: HIV INFECTION
     Route: 048
  6. LAMIVUDINE [Suspect]
     Route: 048

REACTIONS (3)
  - DRUG EXPOSURE DURING PREGNANCY [None]
  - PRE-ECLAMPSIA [None]
  - PREGNANCY [None]
